FAERS Safety Report 19351502 (Version 10)
Quarter: 2022Q4

REPORT INFORMATION
  Report Type: Spontaneous
  Country: US (occurrence: US)
  Receive Date: 20210531
  Receipt Date: 20221230
  Transmission Date: 20230113
  Serious: Yes (Other)
  Sender: FDA-Public Use
  Company Number: US-PFIZER INC-2020337969

PATIENT
  Age: 72 Year
  Sex: Female

DRUGS (1)
  1. EUCRISA [Suspect]
     Active Substance: CRISABOROLE
     Dosage: 2X/DAY (APPLY SMALL AMOUNT)
     Route: 061

REACTIONS (9)
  - Upper limb fracture [Unknown]
  - Fall [Unknown]
  - Frustration tolerance decreased [Unknown]
  - Feeling abnormal [Unknown]
  - Pruritus [Unknown]
  - Stress [Unknown]
  - Memory impairment [Unknown]
  - Intentional product misuse [Unknown]
  - Product prescribing error [Unknown]
